FAERS Safety Report 10585399 (Version 1)
Quarter: 2014Q4

REPORT INFORMATION
  Report Type: Spontaneous
  Country: DE (occurrence: None)
  Receive Date: 20141113
  Receipt Date: 20141113
  Transmission Date: 20150529
  Serious: Yes (Other)
  Sender: FDA-Public Use
  Company Number: DE-ZYDUS-005427

PATIENT
  Age: 49 Year
  Sex: Male

DRUGS (2)
  1. RIBAVIRIN (RIBAVIRIN) [Suspect]
     Active Substance: RIBAVIRIN
  2. PEGINTERFERON ALFA-2A [Suspect]
     Active Substance: PEGINTERFERON ALFA-2A
     Dosage: 1.00 TIMES PER-1.0 WEEKS

REACTIONS (5)
  - Leukopenia [None]
  - Hypertension [None]
  - Erythema nodosum [None]
  - Gastrooesophageal reflux disease [None]
  - Anaemia [None]
